FAERS Safety Report 5943809-5 (Version None)
Quarter: 2008Q4

REPORT INFORMATION
  Report Type: 
  Country: None (occurrence: None)
  Receive Date: 20081104
  Receipt Date: 20081020
  Transmission Date: 20090506
  Serious: Yes (Other)
  Sender: FDA-Public Use
  Company Number: 230184K08USA

PATIENT
  Age: 41 Year
  Weight: 82 kg

DRUGS (1)
  1. REBIF [Suspect]
     Indication: MULTIPLE SCLEROSIS
     Dosage: 44 MCG, 3 IN 1 WEEKS, SUBCUTANEOUS
     Route: 058
     Dates: start: 20040607

REACTIONS (4)
  - BACK PAIN [None]
  - MULTIPLE SCLEROSIS [None]
  - MUSCULOSKELETAL PAIN [None]
  - NERVE INJURY [None]
